FAERS Safety Report 11756066 (Version 1)
Quarter: 2015Q4

REPORT INFORMATION
  Report Type: Report from Study
  Country: PL (occurrence: PL)
  Receive Date: 20151119
  Receipt Date: 20151119
  Transmission Date: 20160304
  Serious: Yes (Other)
  Sender: FDA-Public Use
  Company Number: PL-BAXTER-2015BAX061805

PATIENT
  Sex: Female

DRUGS (10)
  1. AERRANE [Suspect]
     Active Substance: ISOFLURANE
     Indication: ANAESTHESIA
     Dosage: WITH NITROUS OXIDE/OXYGEN, 2:1 RATIO, 3 LITERS PER MINUTE, END TIDAL CONCENTRATION OF 0.5 VOLUME PER
     Route: 055
  2. OXYGEN. [Suspect]
     Active Substance: OXYGEN
     Indication: ANAESTHESIA
     Dosage: 2:1 RATIO WITH ISOFLURANE, 3 LITERS PER MIN
     Route: 065
  3. VECURONIUM [Suspect]
     Active Substance: VECURONIUM BROMIDE
     Indication: INDUCTION OF ANAESTHESIA
     Route: 065
  4. FENTANYL. [Suspect]
     Active Substance: FENTANYL
     Indication: INDUCTION OF ANAESTHESIA
     Dosage: 1 TO 2 MICROGRAM/KG
     Route: 065
  5. NITROUS OXIDE. [Suspect]
     Active Substance: NITROUS OXIDE
     Indication: ANAESTHESIA
     Dosage: 2:1 RATIO WITH ISOFLURANE, 3 LITERS PER MIN
     Route: 065
  6. MIDAZOLAM [Suspect]
     Active Substance: MIDAZOLAM\MIDAZOLAM HYDROCHLORIDE
     Indication: PREMEDICATION
     Dosage: 0.1 TO 0.2 MG/KG 1 HOUR BEFORE SURGERY
     Route: 048
  7. ETOMIDATE. [Suspect]
     Active Substance: ETOMIDATE
     Indication: INDUCTION OF ANAESTHESIA
     Route: 065
  8. ESTAZOLAM. [Suspect]
     Active Substance: ESTAZOLAM
     Indication: PREMEDICATION
     Dosage: DURING EVENING BEFORE SURGERY
     Route: 048
  9. FENTANYL. [Suspect]
     Active Substance: FENTANYL
     Dosage: AS REQUIRED
     Route: 065
  10. VECURONIUM [Suspect]
     Active Substance: VECURONIUM BROMIDE
     Dosage: AS REQUIRED
     Route: 065

REACTIONS (1)
  - Electrocardiogram QT prolonged [Recovered/Resolved]
